FAERS Safety Report 13973501 (Version 5)
Quarter: 2018Q3

REPORT INFORMATION
  Report Type: Report from Study
  Country: None (occurrence: US)
  Receive Date: 20170915
  Receipt Date: 20180820
  Transmission Date: 20181010
  Serious: Yes (Hospitalization, Other)
  Sender: FDA-Public Use
  Company Number: US-ABBVIE-17K-163-1993633-00

PATIENT
  Age: 61 Year
  Sex: Female

DRUGS (2)
  1. HUMIRA [Suspect]
     Active Substance: ADALIMUMAB
     Indication: CROHN^S DISEASE
     Route: 058
     Dates: end: 201708
  2. HUMIRA [Suspect]
     Active Substance: ADALIMUMAB
     Indication: COLITIS ULCERATIVE
     Route: 058
     Dates: start: 2017, end: 201805

REACTIONS (36)
  - Spinal osteoarthritis [Unknown]
  - Defaecation urgency [Unknown]
  - Blood magnesium decreased [Recovering/Resolving]
  - Blood potassium decreased [Recovering/Resolving]
  - General physical health deterioration [Unknown]
  - Tongue ulceration [Not Recovered/Not Resolved]
  - Eye injury [Unknown]
  - Facial bones fracture [Unknown]
  - Renal failure [Unknown]
  - Loss of consciousness [Unknown]
  - Dizziness [Unknown]
  - Neuralgia [Not Recovered/Not Resolved]
  - Septic shock [Unknown]
  - Heart rate increased [Unknown]
  - Arthritis [Unknown]
  - Nerve root compression [Unknown]
  - Poor venous access [Unknown]
  - Joint range of motion decreased [Unknown]
  - Grip strength decreased [Unknown]
  - Nerve compression [Unknown]
  - Type 2 diabetes mellitus [Recovering/Resolving]
  - Fibromyalgia [Not Recovered/Not Resolved]
  - Dehydration [Unknown]
  - Muscular weakness [Unknown]
  - Hypertension [Unknown]
  - Suicidal ideation [Unknown]
  - Dysuria [Unknown]
  - Vitamin D decreased [Recovering/Resolving]
  - Intervertebral disc protrusion [Unknown]
  - Depression [Not Recovered/Not Resolved]
  - Crohn^s disease [Not Recovered/Not Resolved]
  - Pain [Unknown]
  - Spinal osteoarthritis [Unknown]
  - Musculoskeletal pain [Not Recovered/Not Resolved]
  - Pyrexia [Unknown]
  - Fall [Unknown]

NARRATIVE: CASE EVENT DATE: 2016
